FAERS Safety Report 5463503-7 (Version None)
Quarter: 2007Q3

REPORT INFORMATION
  Report Type: 
  Country: None (occurrence: None)
  Receive Date: 20070920
  Receipt Date: 20070905
  Transmission Date: 20080115
  Serious: Yes (Hospitalization, Other)
  Sender: FDA-Public Use
  Company Number: SE-PFIZER INC-2007071916

PATIENT
  Sex: Female
  Weight: 87 kg

DRUGS (3)
  1. CHAMPIX [Suspect]
     Indication: DRUG WITHDRAWAL SYNDROME
     Route: 048
     Dates: start: 20070207, end: 20070503
  2. CHAMPIX [Suspect]
     Indication: EX-SMOKER
  3. ALL OTHER THERAPEUTIC PRODUCTS [Concomitant]

REACTIONS (2)
  - CARDIAC FAILURE [None]
  - OEDEMA [None]
